FAERS Safety Report 16231146 (Version 1)
Quarter: 2019Q2

REPORT INFORMATION
  Report Type: Spontaneous
  Country: US (occurrence: US)
  Receive Date: 20190424
  Receipt Date: 20190424
  Transmission Date: 20190711
  Serious: Yes (Other)
  Sender: FDA-Public Use
  Company Number: US-SA-2019SA106047

PATIENT

DRUGS (5)
  1. TETRACYCLINE HYDROCHLORIDE. [Suspect]
     Active Substance: TETRACYCLINE HYDROCHLORIDE
  2. LOVENOX [Suspect]
     Active Substance: ENOXAPARIN SODIUM
     Dosage: UNK, UNK
  3. ASPARTAME [Suspect]
     Active Substance: ASPARTAME
     Dosage: UNK UNK, UNK
  4. KETOCONAZOLE. [Suspect]
     Active Substance: KETOCONAZOLE
  5. SACCHARIN [Suspect]
     Active Substance: SACCHARIN
     Dosage: UNK UNK, UNK

REACTIONS (6)
  - Blister [Unknown]
  - Anaphylactic reaction [Unknown]
  - Heart rate irregular [Unknown]
  - Asthma [Unknown]
  - Skin disorder [Unknown]
  - Thermal burn [Unknown]
